FAERS Safety Report 17541628 (Version 3)
Quarter: 2020Q4

REPORT INFORMATION
  Report Type: Report from Study
  Country: JP (occurrence: JP)
  Receive Date: 20200313
  Receipt Date: 20201001
  Transmission Date: 20210113
  Serious: Yes (Death, Hospitalization)
  Sender: FDA-Public Use
  Company Number: JP-EISAI MEDICAL RESEARCH-EC-2020-071621

PATIENT
  Age: 62 Year
  Sex: Male
  Weight: 60 kg

DRUGS (2)
  1. LENVIMA [Suspect]
     Active Substance: LENVATINIB
     Route: 048
     Dates: start: 20190313, end: 20191007
  2. LENVIMA [Suspect]
     Active Substance: LENVATINIB
     Indication: HEPATOCELLULAR CARCINOMA
     Route: 048
     Dates: start: 20190104, end: 20190130

REACTIONS (3)
  - Organising pneumonia [Not Recovered/Not Resolved]
  - Malignant neoplasm progression [Fatal]
  - Pulmonary mycosis [Not Recovered/Not Resolved]

NARRATIVE: CASE EVENT DATE: 20191007
